FAERS Safety Report 4805526-4 (Version None)
Quarter: 2005Q4

REPORT INFORMATION
  Report Type: 
  Country: None (occurrence: None)
  Receive Date: 20051018
  Receipt Date: 20051004
  Transmission Date: 20060501
  Serious: Yes (Death, Hospitalization)
  Sender: FDA-Public Use
  Company Number: 2005-02068

PATIENT
  Age: 70 Year
  Sex: Male
  Weight: 55.3 kg

DRUGS (6)
  1. VELCADE [Suspect]
     Indication: MULTIPLE MYELOMA
     Dosage: 2.00 MG,  2/WEEK, INTRAVENOUS
     Route: 042
     Dates: start: 20050913, end: 20050920
  2. DOXIL [Suspect]
     Indication: MULTIPLE MYELOMA
     Dosage: 52.00 MG, QD, INTRAVENOUS
     Route: 042
     Dates: start: 20050916, end: 20050916
  3. LACTULOSE [Concomitant]
  4. MORPHIEN SULFATE (MORPHINE SULFATE0 [Concomitant]
  5. MS CONTIN [Concomitant]
  6. PAMIDRONATE DISODIUM [Concomitant]

REACTIONS (14)
  - ABASIA [None]
  - ALANINE AMINOTRANSFERASE INCREASED [None]
  - ANOREXIA [None]
  - ASPARTATE AMINOTRANSFERASE INCREASED [None]
  - ASTHENIA [None]
  - CONFUSIONAL STATE [None]
  - DYSPNOEA EXERTIONAL [None]
  - FATIGUE [None]
  - PERFORMANCE STATUS DECREASED [None]
  - PLATELET COUNT DECREASED [None]
  - RENAL FAILURE ACUTE [None]
  - TUMOUR LYSIS SYNDROME [None]
  - WEIGHT DECREASED [None]
  - WHITE BLOOD CELL COUNT DECREASED [None]
